FAERS Safety Report 5121788-0 (Version None)
Quarter: 2006Q4

REPORT INFORMATION
  Report Type: 
  Country: None (occurrence: None)
  Receive Date: 20061006
  Receipt Date: 20060925
  Transmission Date: 20070319
  Serious: Yes (Other)
  Sender: FDA-Public Use
  Company Number: JP-ROCHE-464979

PATIENT
  Age: 8 Year
  Sex: Male

DRUGS (3)
  1. TAMIFLU [Suspect]
     Indication: INFLUENZA
     Dosage: DOSING AMOUNT REPORTED AS 12 M/L DAILY.
     Route: 065
     Dates: start: 20060217, end: 20060221
  2. MEIACT [Suspect]
     Indication: OTITIS MEDIA ACUTE
     Dosage: DRUG REPORTED AS MEIACT (CEFDITOEN PIVOXIL).
     Route: 048
     Dates: start: 20060225, end: 20060228
  3. MUCODYNE [Concomitant]
     Indication: OTITIS MEDIA ACUTE
     Dates: start: 20060225, end: 20060228

REACTIONS (3)
  - CONVULSION [None]
  - DEPRESSED LEVEL OF CONSCIOUSNESS [None]
  - HEADACHE [None]
